FAERS Safety Report 4598506-8 (Version None)
Quarter: 2005Q1

REPORT INFORMATION
  Report Type: 
  Country: None (occurrence: None)
  Receive Date: 20050302
  Receipt Date: 20050214
  Transmission Date: 20050727
  Serious: Yes (Hospitalization)
  Sender: FDA-Public Use
  Company Number: 2004BI000545

PATIENT
  Age: 18 Year
  Sex: Female
  Weight: 83.9154 kg

DRUGS (9)
  1. AVONEX [Suspect]
     Indication: MULTIPLE SCLEROSIS
     Dosage: 30 UG QW; IM
     Route: 030
     Dates: start: 20010201, end: 20040201
  2. NEURONTIN [Concomitant]
  3. CYTOXAN [Concomitant]
  4. RITUXAN [Concomitant]
  5. DEPAKOTE [Concomitant]
  6. TOPAMAX [Concomitant]
  7. DILAUDID [Concomitant]
  8. AVINZA [Concomitant]
  9. PROZAC [Concomitant]

REACTIONS (4)
  - CONDITION AGGRAVATED [None]
  - FALL [None]
  - PROGRESSIVE MULTIPLE SCLEROSIS [None]
  - VISUAL EVOKED POTENTIALS ABNORMAL [None]
